FAERS Safety Report 6804235-X (Version None)
Quarter: 2010Q2

REPORT INFORMATION
  Report Type: 
  Country: None (occurrence: None)
  Receive Date: 20100628
  Receipt Date: 20070216
  Transmission Date: 20101027
  Serious: No
  Sender: FDA-Public Use
  Company Number: US-PFIZER INC-2007013192

PATIENT
  Age: 19 Year
  Sex: Male

DRUGS (1)
  1. GEODON [Suspect]
     Dates: start: 20060101

REACTIONS (1)
  - EXTRAPYRAMIDAL DISORDER [None]
